FAERS Safety Report 6763057-9 (Version None)
Quarter: 2010Q2

REPORT INFORMATION
  Report Type: 
  Country: None (occurrence: None)
  Receive Date: 20100609
  Receipt Date: 20100527
  Transmission Date: 20101027
  Serious: Yes (Other)
  Sender: FDA-Public Use
  Company Number: PHHY2010CA34962

PATIENT
  Sex: Female

DRUGS (6)
  1. ACLASTA [Suspect]
     Indication: OSTEOPOROSIS
     Dosage: 5 MG
     Route: 042
     Dates: start: 20090507
  2. ACLASTA [Suspect]
     Dosage: 5 MG
     Route: 042
     Dates: start: 20100527
  3. WARFARIN [Concomitant]
     Indication: DEEP VEIN THROMBOSIS
  4. WARFARIN [Concomitant]
     Indication: EMBOLISM
  5. PROPRANOLOL [Concomitant]
     Indication: ANXIETY
     Dosage: 20 MG, QD
     Route: 048
  6. PROZAC [Concomitant]
     Indication: ANXIETY
     Dosage: 20 MG, QD
     Route: 048

REACTIONS (3)
  - COMMINUTED FRACTURE [None]
  - FALL [None]
  - HAEMATOMA [None]
